FAERS Safety Report 17524165 (Version 1)
Quarter: 2020Q1

REPORT INFORMATION
  Report Type: Spontaneous
  Country: US (occurrence: US)
  Receive Date: 20200302
  Receipt Date: 20200302
  Transmission Date: 20200409
  Serious: Yes (Hospitalization)
  Sender: FDA-Public Use
  Company Number: None

PATIENT
  Sex: Male

DRUGS (1)
  1. ERLEADA [Suspect]
     Active Substance: APALUTAMIDE
     Indication: METASTASES TO BONE
     Dosage: ?          OTHER FREQUENCY:4 TABS DAILY;?
     Route: 048
     Dates: start: 20200211

REACTIONS (3)
  - Hypoaesthesia oral [None]
  - Therapy cessation [None]
  - Headache [None]
